FAERS Safety Report 10529912 (Version 1)
Quarter: 2014Q4

REPORT INFORMATION
  Report Type: Spontaneous
  Country: US (occurrence: None)
  Receive Date: 20141017
  Receipt Date: 20141017
  Transmission Date: 20150528
  Serious: Yes (Other)
  Sender: FDA-Public Use
  Company Number: ADR-2013-01477

PATIENT
  Sex: Female

DRUGS (1)
  1. LIORESAL [Suspect]
     Active Substance: BACLOFEN
     Indication: MUSCLE SPASTICITY

REACTIONS (9)
  - Hypotension [None]
  - Muscle atrophy [None]
  - Migraine [None]
  - Dysstasia [None]
  - Multiple sclerosis [None]
  - Cystitis [None]
  - Musculoskeletal stiffness [None]
  - Device dislocation [None]
  - Abasia [None]
